FAERS Safety Report 7328881-2 (Version None)
Quarter: 2011Q1

REPORT INFORMATION
  Report Type: 
  Country: None (occurrence: None)
  Receive Date: 20110303
  Receipt Date: 20110222
  Transmission Date: 20110831
  Serious: Yes (Hospitalization)
  Sender: FDA-Public Use
  Company Number: US-ASTRAZENECA-2010SE51258

PATIENT
  Age: 59 Year
  Sex: Male
  Weight: 111 kg

DRUGS (13)
  1. JANUMET [Concomitant]
     Dosage: 1 DF = 50/850 MG EVERY DAY
  2. METFORMIN HCL [Suspect]
     Indication: DIABETES MELLITUS
     Route: 048
     Dates: start: 20070101
  3. ENAHEXAL [Suspect]
  4. SPIRONOLACTONE [Concomitant]
  5. DOCITON [Concomitant]
     Dosage: 1 DF = 40 UNIT NOT MENTIONED,.5 UNIT NOT MENTIONED TAKEN 3 TIMES PER DAY
  6. FUROSEMIDE [Concomitant]
  7. ONGLYZA [Suspect]
     Indication: DIABETES MELLITUS
     Route: 048
     Dates: start: 20100726
  8. AMLODIPINE [Suspect]
     Dosage: 10 MG, 1/2 PER DAY
  9. TORSEMIDE [Suspect]
     Dosage: 20 MG, 1/2 PER DAY
  10. ATENOLOL [Suspect]
  11. GODAMED [Suspect]
  12. SIMVASTATIN [Suspect]
     Route: 048
     Dates: start: 20080101
  13. AVANDAMET [Concomitant]

REACTIONS (6)
  - LEUKOCYTOSIS [None]
  - ASCITES [None]
  - BLOOD BILIRUBIN INCREASED [None]
  - TRANSAMINASES INCREASED [None]
  - BLOOD ALBUMIN DECREASED [None]
  - GAMMA-GLUTAMYLTRANSFERASE INCREASED [None]
